FAERS Safety Report 6157452-9 (Version None)
Quarter: 2009Q2

REPORT INFORMATION
  Report Type: 
  Country: None (occurrence: None)
  Receive Date: 20090416
  Receipt Date: 20090406
  Transmission Date: 20091009
  Serious: Yes (Other)
  Sender: FDA-Public Use
  Company Number: US-PFIZER INC-2009194589

PATIENT
  Sex: Female
  Weight: 55.791 kg

DRUGS (5)
  1. CORTEF [Suspect]
     Indication: ADRENOCORTICAL INSUFFICIENCY ACUTE
     Dosage: UNK
     Dates: start: 20020101
  2. SOLU-CORTEF [Suspect]
     Dosage: UNK
     Dates: start: 20090323
  3. BUDESONIDE [Concomitant]
  4. PRILOSEC [Concomitant]
  5. XANAX [Concomitant]

REACTIONS (6)
  - ADRENAL INSUFFICIENCY [None]
  - DEHYDRATION [None]
  - DIVERTICULITIS [None]
  - DYSPHAGIA [None]
  - INFECTION [None]
  - WEIGHT DECREASED [None]
